FAERS Safety Report 16141176 (Version 1)
Quarter: 2019Q1

REPORT INFORMATION
  Report Type: Spontaneous
  Country: US (occurrence: US)
  Receive Date: 20190226
  Receipt Date: 20190226
  Transmission Date: 20190418
  Serious: Yes (Death)
  Sender: FDA-Public Use
  Company Number: None

PATIENT
  Age: 73 Year
  Sex: Male
  Weight: 103.9 kg

DRUGS (2)
  1. LEUPROLIDE ACETATE. [Suspect]
     Active Substance: LEUPROLIDE ACETATE
     Dates: end: 20181121
  2. CASODEX [Suspect]
     Active Substance: BICALUTAMIDE
     Dates: end: 20190130

REACTIONS (4)
  - Myocardial infarction [None]
  - Post procedural pulmonary embolism [None]
  - Anaesthetic complication [None]
  - Sudden death [None]

NARRATIVE: CASE EVENT DATE: 20190130
